FAERS Safety Report 9640993 (Version 1)
Quarter: 2013Q4

REPORT INFORMATION
  Report Type: Spontaneous
  Country: US (occurrence: US)
  Receive Date: 20131023
  Receipt Date: 20131023
  Transmission Date: 20140711
  Serious: No
  Sender: FDA-Public Use
  Company Number: US-ABBVIE-12P-163-1023908-00

PATIENT
  Age: 77 Year
  Sex: Male
  Weight: 72.64 kg

DRUGS (4)
  1. LUPRON [Suspect]
     Indication: PROSTATE CANCER STAGE III
     Dosage: TWO SHOTS, 1 IN EACH HIP, ONCE
     Route: 030
     Dates: start: 20121106, end: 20121106
  2. LUPRON DEPOT [Suspect]
     Indication: PROSTATE CANCER STAGE III
     Route: 030
     Dates: start: 20121210
  3. CELEBREX [Concomitant]
     Indication: ARTHRITIS
  4. UNKNOWN BLOOD PRESSURE MEDICATIONS [Concomitant]
     Indication: HYPERTENSION
     Route: 048

REACTIONS (4)
  - Muscular weakness [Recovered/Resolved]
  - Fatigue [Recovered/Resolved]
  - Therapeutic response unexpected [Not Recovered/Not Resolved]
  - Dysuria [Recovered/Resolved]
